FAERS Safety Report 12642783 (Version 3)
Quarter: 2016Q3

REPORT INFORMATION
  Report Type: Spontaneous
  Country: US (occurrence: US)
  Receive Date: 20160811
  Receipt Date: 20160907
  Transmission Date: 20161109
  Serious: Yes (Hospitalization, Other)
  Sender: FDA-Public Use
  Company Number: PHEH2016US020117

PATIENT
  Age: 24 Year
  Sex: Female
  Weight: 106.58 kg

DRUGS (3)
  1. ZOFRAN [Suspect]
     Active Substance: ONDANSETRON HYDROCHLORIDE
     Indication: VOMITING IN PREGNANCY
     Dosage: UNK
     Route: 048
  2. ZOFRAN [Suspect]
     Active Substance: ONDANSETRON HYDROCHLORIDE
     Indication: PRODUCT USED FOR UNKNOWN INDICATION
     Dosage: UNK
     Route: 048
  3. ZOFRAN [Suspect]
     Active Substance: ONDANSETRON HYDROCHLORIDE
     Indication: PRODUCT USED FOR UNKNOWN INDICATION
     Dosage: UNK
     Route: 042

REACTIONS (16)
  - Abdominal pain lower [Unknown]
  - Nephrolithiasis [Unknown]
  - Pain [Unknown]
  - Renal disorder in pregnancy [Unknown]
  - Diarrhoea [Unknown]
  - Ureterolithiasis [Unknown]
  - Injury [Unknown]
  - Emotional distress [Unknown]
  - Maternal exposure during pregnancy [Unknown]
  - Vulvovaginal discomfort [Unknown]
  - Haemorrhage [Unknown]
  - Product use issue [Unknown]
  - Anxiety [Unknown]
  - Premature delivery [Unknown]
  - Urinary tract infection [Unknown]
  - Vertigo [Unknown]

NARRATIVE: CASE EVENT DATE: 20091128
